FAERS Safety Report 5257330-3 (Version None)
Quarter: 2007Q1

REPORT INFORMATION
  Report Type: 
  Country: None (occurrence: None)
  Receive Date: 20070307
  Receipt Date: 20070302
  Transmission Date: 20070707
  Serious: Yes (Hospitalization)
  Sender: FDA-Public Use
  Company Number: FR-JNJFOC-20070205502

PATIENT
  Age: 56 Year
  Sex: Male

DRUGS (2)
  1. REMICADE [Suspect]
     Indication: COLITIS ULCERATIVE
     Route: 042
  2. AZATHIOPRINE SODIUM [Suspect]
     Indication: COLITIS ULCERATIVE
     Route: 048

REACTIONS (5)
  - LEGIONELLA INFECTION [None]
  - LUNG DISORDER [None]
  - PLEURAL EFFUSION [None]
  - PLEURISY [None]
  - PNEUMONIA [None]
